FAERS Safety Report 15620395 (Version 3)
Quarter: 2021Q1

REPORT INFORMATION
  Report Type: Spontaneous
  Country: FR (occurrence: FR)
  Receive Date: 20181115
  Receipt Date: 20210205
  Transmission Date: 20210419
  Serious: Yes (Hospitalization, Other)
  Sender: FDA-Public Use
  Company Number: FR-TEVA-2018-FR-974447

PATIENT
  Age: 63 Year
  Sex: Female

DRUGS (16)
  1. CARBOPLATIN. [Suspect]
     Active Substance: CARBOPLATIN
     Indication: OVARIAN CANCER
     Dosage: TARGET AREA UNDER THE CURVE, AUC 6 ;6 CYCLES
     Route: 065
     Dates: start: 2012
  2. CARBOPLATIN. [Suspect]
     Active Substance: CARBOPLATIN
     Dosage: AUC 4; SIX CYCLES ADMINISTERED ON DAYS 1 AND 8
     Route: 065
     Dates: start: 201508, end: 201512
  3. PACLITAXEL. [Suspect]
     Active Substance: PACLITAXEL
     Indication: OVARIAN CANCER
     Dosage: DURING CYCLE 1, 2 AND 6
     Route: 065
     Dates: start: 2012
  4. DOXORUBICIN?LIPOSOMAL [Suspect]
     Active Substance: DOXORUBICIN
     Indication: OVARIAN CANCER
     Route: 065
     Dates: start: 201405
  5. TRABECTEDIN [Suspect]
     Active Substance: TRABECTEDIN
     Route: 065
     Dates: start: 201411
  6. APREPITANT. [Concomitant]
     Active Substance: APREPITANT
     Dosage: DAY 3?7
     Route: 065
     Dates: start: 201411
  7. PACLITAXEL. [Suspect]
     Active Substance: PACLITAXEL
     Dosage: CHEMOTHERAPY WAS RESUMED IN 2 CYCLES
     Route: 065
     Dates: start: 201303, end: 201304
  8. GEMCITABINE. [Suspect]
     Active Substance: GEMCITABINE
     Indication: OVARIAN CANCER
     Dosage: ADMINISTERED ON DAYS 1 AND 8, FOR 6 CYCLES.
     Route: 065
     Dates: start: 201508, end: 201512
  9. DOXORUBICIN?LIPOSOMAL [Suspect]
     Active Substance: DOXORUBICIN
     Route: 065
     Dates: start: 201411
  10. OLAPARIB. [Suspect]
     Active Substance: OLAPARIB
     Indication: OVARIAN CANCER
     Dosage: AFTER THE ONSET OF ADRS, THE DOSE WAS FIRST DECREASED;HOWEVER, SHE DEVELOPED FURTHER UNSPECIFIED AES
     Route: 065
  11. CARBOPLATIN. [Suspect]
     Active Substance: CARBOPLATIN
     Dosage: CHEMOTHERAPY WAS RESUMED IN TWO CYCLES
     Route: 065
     Dates: start: 201303, end: 201304
  12. CARBOPLATIN. [Suspect]
     Active Substance: CARBOPLATIN
     Dosage: ADMINISTERED ON DAYS 1 AND 8, CONTINUED FOR 6 CYCLES AT A 20% REDUCED DOSE AND THEN STOPPED
     Route: 065
     Dates: start: 201701, end: 201706
  13. BEVACIZUMAB. [Suspect]
     Active Substance: BEVACIZUMAB
     Indication: OVARIAN CANCER
     Dosage: DURING CYCLE 3, 4 AND 5
     Route: 065
     Dates: start: 2012
  14. BEVACIZUMAB. [Suspect]
     Active Substance: BEVACIZUMAB
     Route: 065
     Dates: start: 201303, end: 201304
  15. TRABECTEDIN [Suspect]
     Active Substance: TRABECTEDIN
     Indication: OVARIAN CANCER
     Route: 065
     Dates: start: 201405
  16. GEMCITABINE. [Suspect]
     Active Substance: GEMCITABINE
     Dosage: ADMINISTERED ON DAYS 1 AND 8, CONTINUED FOR 6 CYCLES AT A 20% REDUCED DOSE AND THEN STOPPED
     Route: 065
     Dates: start: 201701, end: 201706

REACTIONS (14)
  - Headache [Unknown]
  - Nausea [Unknown]
  - Anaemia [Unknown]
  - Drug hypersensitivity [Unknown]
  - Hepatotoxicity [Recovered/Resolved]
  - Thrombocytopenia [Unknown]
  - Neutropenia [Unknown]
  - Pneumonia [Unknown]
  - Lung disorder [Unknown]
  - Escherichia infection [Recovered/Resolved]
  - Neuropathy peripheral [Unknown]
  - Diarrhoea [Unknown]
  - Alopecia [Unknown]
  - Asthenia [Unknown]
